FAERS Safety Report 16404874 (Version 2)
Quarter: 2020Q2

REPORT INFORMATION
  Report Type: Report from Study
  Country: IT (occurrence: IT)
  Receive Date: 20190607
  Receipt Date: 20200618
  Transmission Date: 20200713
  Serious: Yes (Hospitalization, Other)
  Sender: FDA-Public Use
  Company Number: IT-SA-2019SA137667

PATIENT

DRUGS (1)
  1. AGALSIDASE BETA [Suspect]
     Active Substance: AGALSIDASE BETA
     Indication: FABRY^S DISEASE
     Dosage: 2 DF, QOW
     Route: 041
     Dates: start: 20180126

REACTIONS (5)
  - Atrial fibrillation [Recovered/Resolved]
  - Pruritus [Not Recovered/Not Resolved]
  - Hypertension [Not Recovered/Not Resolved]
  - Tachycardia [Not Recovered/Not Resolved]
  - Rash [Not Recovered/Not Resolved]

NARRATIVE: CASE EVENT DATE: 20190520
